FAERS Safety Report 7929942-7 (Version None)
Quarter: 2011Q4

REPORT INFORMATION
  Report Type: 
  Country: None (occurrence: None)
  Receive Date: 20111118
  Receipt Date: 20111118
  Transmission Date: 20120403
  Serious: Yes (Hospitalization)
  Sender: FDA-Public Use
  Company Number: None

PATIENT
  Sex: Female

DRUGS (1)
  1. HYDROXYCHLOROQUINE SULFATE [Suspect]
     Dosage: 200 MG, 2 DAILY, BY MOUTH
     Route: 048
     Dates: start: 20111019, end: 20111109

REACTIONS (2)
  - BLISTER [None]
  - THERMAL BURN [None]
